FAERS Safety Report 9986453 (Version 1)
Quarter: 2014Q1

REPORT INFORMATION
  Report Type: Report from Study
  Country: US (occurrence: US)
  Receive Date: 20140307
  Receipt Date: 20140307
  Transmission Date: 20141002
  Serious: Yes (Other)
  Sender: FDA-Public Use
  Company Number: US-ABBVIE-13P-163-1082100-00

PATIENT
  Age: 32 Year
  Sex: Female

DRUGS (4)
  1. HUMIRA [Suspect]
     Indication: COLITIS ULCERATIVE
     Dates: start: 20121029, end: 201301
  2. 6MP [Concomitant]
     Indication: COLITIS ULCERATIVE
     Route: 048
  3. BALSALAZIDE [Concomitant]
     Indication: COLITIS ULCERATIVE
  4. MESALAMINE [Concomitant]
     Indication: COLITIS ULCERATIVE
     Dosage: 1 EVERY NIGHT

REACTIONS (3)
  - Lupus-like syndrome [Recovering/Resolving]
  - Muscular weakness [Unknown]
  - Paraesthesia [Unknown]
